FAERS Safety Report 8132990-8 (Version None)
Quarter: 2012Q1

REPORT INFORMATION
  Report Type: 
  Country: None (occurrence: None)
  Receive Date: 20120213
  Receipt Date: 20120104
  Transmission Date: 20120608
  Serious: Yes (Death)
  Sender: FDA-Public Use
  Company Number: US-COVIDIEN/TYCO HEALTHCARE/MALLINCKRODT-T201200223

PATIENT
  Age: 77 Year
  Sex: Male

DRUGS (4)
  1. OXYCODONE HCL [Suspect]
     Route: 048
  2. CARBAMAZEPINE [Suspect]
     Route: 048
  3. POTASSIUM CHLORIDE [Suspect]
     Route: 048
  4. ACETAMINOPHEN [Suspect]
     Route: 048

REACTIONS (2)
  - CARDIO-RESPIRATORY ARREST [None]
  - COMPLETED SUICIDE [None]
